FAERS Safety Report 5420643-6 (Version None)
Quarter: 2007Q3

REPORT INFORMATION
  Report Type: 
  Country: None (occurrence: None)
  Receive Date: 20070816
  Receipt Date: 20070810
  Transmission Date: 20080115
  Serious: Yes (Hospitalization)
  Sender: FDA-Public Use
  Company Number: JPI-P-001856

PATIENT
  Sex: Female

DRUGS (3)
  1. XYREM (OXYBATE SODIUM) (500 MILLIGRAM/MILLIMITERS, SOLUTION) (SODIUM O [Suspect]
     Indication: INTENTIONAL DRUG MISUSE
     Dosage: 1.875 GM, ORAL
     Route: 048
     Dates: start: 20070804
  2. VALIUM [Suspect]
     Indication: DRUG USE FOR UNKNOWN INDICATION
     Dosage: (1)
  3. ALCOHOL (ETHANOL) [Suspect]
     Indication: DRUG USE FOR UNKNOWN INDICATION

REACTIONS (2)
  - EMOTIONAL DISTRESS [None]
  - MULTIPLE DRUG OVERDOSE INTENTIONAL [None]
